FAERS Safety Report 10939967 (Version 1)
Quarter: 2015Q1

REPORT INFORMATION
  Report Type: Spontaneous
  Country: US (occurrence: None)
  Receive Date: 20150212
  Receipt Date: 20150212
  Transmission Date: 20150721
  Serious: No
  Sender: FDA-Public Use
  Company Number: TPA2011A02476

PATIENT
  Age: 58 Year
  Sex: Female
  Weight: 145.61 kg

DRUGS (1)
  1. ULORIC [Suspect]
     Active Substance: FEBUXOSTAT
     Indication: GOUT

REACTIONS (2)
  - Condition aggravated [None]
  - Psoriasis [None]

NARRATIVE: CASE EVENT DATE: 20110413
